FAERS Safety Report 9128086 (Version 1)
Quarter: 2013Q1

REPORT INFORMATION
  Report Type: Spontaneous
  Country: US (occurrence: US)
  Receive Date: 20130125
  Receipt Date: 20130125
  Transmission Date: 20140127
  Serious: Yes (Death)
  Sender: FDA-Public Use
  Company Number: PHHY2013US006992

PATIENT
  Age: 38 Year
  Sex: Male

DRUGS (2)
  1. METOPROLOL [Suspect]
  2. VERAPAMIL [Suspect]

REACTIONS (1)
  - Completed suicide [Fatal]
